FAERS Safety Report 22001223 (Version 2)
Quarter: 2023Q1

REPORT INFORMATION
  Report Type: Spontaneous
  Country: JP (occurrence: JP)
  Receive Date: 20230216
  Receipt Date: 20230222
  Transmission Date: 20230418
  Serious: Yes (Death, Other)
  Sender: FDA-Public Use
  Company Number: JP-GSKJP-JP2023JPN023598AA

PATIENT

DRUGS (2)
  1. ZOVIRAX [Suspect]
     Active Substance: ACYCLOVIR
     Indication: Infection prophylaxis
     Dosage: UNK
  2. ACYCLOVIR [Suspect]
     Active Substance: ACYCLOVIR
     Dosage: UNK
     Route: 047

REACTIONS (10)
  - General physical health deterioration [Fatal]
  - Corneal epithelium defect [Unknown]
  - Pathogen resistance [Unknown]
  - Conjunctival disorder [Unknown]
  - Abnormal sensation in eye [Unknown]
  - Lacrimation increased [Unknown]
  - Ocular hyperaemia [Unknown]
  - Corneal erosion [Unknown]
  - Keratitis [Unknown]
  - Product use in unapproved indication [Unknown]
